FAERS Safety Report 15057564 (Version 3)
Quarter: 2024Q4

REPORT INFORMATION
  Report Type: Spontaneous
  Country: US (occurrence: US)
  Receive Date: 20180625
  Receipt Date: 20241230
  Transmission Date: 20250115
  Serious: Yes (Hospitalization, Other)
  Sender: MERCK
  Company Number: US-009507513-1803USA008244

PATIENT

DRUGS (2)
  1. CUBICIN [Suspect]
     Active Substance: DAPTOMYCIN
     Indication: Product used for unknown indication
     Dosage: UNK
     Route: 065
     Dates: start: 201710
  2. CUBICIN RF [Suspect]
     Active Substance: DAPTOMYCIN
     Route: 065

REACTIONS (6)
  - Seizure [Unknown]
  - Osteomyelitis [Unknown]
  - Muscle rigidity [Unknown]
  - Chills [Unknown]
  - Pyrexia [Unknown]
  - Incorrect dose administered [Unknown]
